FAERS Safety Report 5535375-3 (Version None)
Quarter: 2007Q4

REPORT INFORMATION
  Report Type: 
  Country: None (occurrence: None)
  Receive Date: 20071206
  Receipt Date: 20071127
  Transmission Date: 20080405
  Serious: Yes (Hospitalization)
  Sender: FDA-Public Use
  Company Number: FR-WYE-H01412207

PATIENT
  Age: 87 Year
  Sex: Male

DRUGS (3)
  1. CORDARONE [Suspect]
     Indication: ARRHYTHMIA
     Dosage: ^LOADING DOSE OF 16 TABLETS FOR 3 DAYS^
     Route: 048
     Dates: start: 20070601, end: 20070601
  2. CORDARONE [Suspect]
     Route: 048
     Dates: start: 20070601, end: 20071102
  3. CORDARONE [Suspect]
     Route: 048
     Dates: start: 20071103, end: 20071112

REACTIONS (3)
  - ACUTE PULMONARY OEDEMA [None]
  - BRONCHITIS [None]
  - PULMONARY FIBROSIS [None]
